FAERS Safety Report 15213319 (Version 1)
Quarter: 2018Q3

REPORT INFORMATION
  Report Type: Report from Study
  Country: MX (occurrence: MX)
  Receive Date: 20180730
  Receipt Date: 20180730
  Transmission Date: 20181010
  Serious: Yes (Death)
  Sender: FDA-Public Use
  Company Number: MX-UCBSA-2017002082

PATIENT
  Sex: Male
  Weight: 80 kg

DRUGS (4)
  1. LEVODOPA [Concomitant]
     Active Substance: LEVODOPA
     Indication: PARKINSON^S DISEASE
     Dosage: 5 TABLETS/24 HRS
     Dates: start: 2015
  2. ROTIGOTINE [Suspect]
     Active Substance: ROTIGOTINE
     Indication: PARKINSON^S DISEASE
     Dosage: 4 MG, 2X/DAY (BID)(4 MG/12 HRS)
     Route: 062
     Dates: start: 2015
  3. AMANTADINE. [Concomitant]
     Active Substance: AMANTADINE HYDROCHLORIDE
     Indication: PARKINSON^S DISEASE
     Dosage: 100 MG, 3X/DAY (TID)
     Dates: start: 2015
  4. CARBIDOPA W/ENTACAPONE/LEVODOPA [Concomitant]
     Active Substance: CARBIDOPA\ENTACAPONE\LEVODOPA
     Indication: PARKINSON^S DISEASE
     Dosage: 500 MG, ONCE DAILY (QD)
     Dates: start: 2015

REACTIONS (2)
  - Intentional product misuse [Unknown]
  - Death [Fatal]

NARRATIVE: CASE EVENT DATE: 2015
